FAERS Safety Report 11857666 (Version 1)
Quarter: 2015Q4

REPORT INFORMATION
  Report Type: Spontaneous
  Country: US (occurrence: None)
  Receive Date: 20151221
  Receipt Date: 20151221
  Transmission Date: 20160305
  Serious: Yes (Other)
  Sender: FDA-Public Use
  Company Number: None

PATIENT
  Age: 57 Year
  Sex: Female

DRUGS (1)
  1. HUMIRA [Suspect]
     Active Substance: ADALIMUMAB
     Indication: RHEUMATOID ARTHRITIS
     Dosage: DOSE FORM: INJECTABLE
     Route: 058
     Dates: start: 20151008

REACTIONS (3)
  - Injection site rash [None]
  - Injection site swelling [None]
  - Injection site reaction [None]

NARRATIVE: CASE EVENT DATE: 20151203
